FAERS Safety Report 12230952 (Version 1)
Quarter: 2016Q2

REPORT INFORMATION
  Report Type: Spontaneous
  Country: GB (occurrence: GB)
  Receive Date: 20160401
  Receipt Date: 20160401
  Transmission Date: 20160815
  Serious: Yes (Other)
  Sender: FDA-Public Use
  Company Number: PHHY2016GB042161

PATIENT
  Age: 63 Year
  Sex: Female

DRUGS (14)
  1. METHOTREXATE [Interacting]
     Active Substance: METHOTREXATE
     Dosage: 20 MG IN 0.8 ML SYRINGE
     Route: 058
  2. METHOTREXATE [Interacting]
     Active Substance: METHOTREXATE
     Dosage: 20 MG IN 0.8 ML SYRINGE
     Route: 058
  3. METHOTREXATE [Interacting]
     Active Substance: METHOTREXATE
     Dosage: 20 MG IN 0.8 ML SYRINGE
     Route: 058
  4. PROPRANOLOL [Concomitant]
     Active Substance: PROPRANOLOL\PROPRANOLOL HYDROCHLORIDE
     Indication: BLOOD PRESSURE MEASUREMENT
     Route: 048
  5. RASAGILINE [Concomitant]
     Active Substance: RASAGILINE
     Indication: PARKINSON^S DISEASE
     Route: 048
  6. ROPINIROLE. [Concomitant]
     Active Substance: ROPINIROLE
     Indication: PARKINSON^S DISEASE
     Dosage: 8 MG, QD
     Route: 048
  7. DIFENE [Interacting]
     Active Substance: DICLOFENAC SODIUM
     Indication: PAIN
     Route: 065
  8. SALAZOPYRIN [Concomitant]
     Active Substance: SULFASALAZINE
     Indication: RHEUMATOID ARTHRITIS
     Dosage: 500 MG, QD
     Route: 048
  9. METHOTREXATE [Suspect]
     Active Substance: METHOTREXATE
     Indication: RHEUMATOID ARTHRITIS
     Dosage: 20 MG IN 0.8 ML SYRINGE, ONCE WEEKLY
     Route: 058
  10. CENTYL K [Concomitant]
     Indication: BLOOD PRESSURE MEASUREMENT
     Dosage: MANE
     Route: 048
  11. ACETAMINOPHEN. [Concomitant]
     Active Substance: ACETAMINOPHEN
     Indication: PRODUCT USED FOR UNKNOWN INDICATION
     Route: 065
  12. METHOTREXATE [Interacting]
     Active Substance: METHOTREXATE
     Dosage: 20 MG IN 0.8 ML SYRINGE
     Route: 058
  13. LYRICA [Concomitant]
     Active Substance: PREGABALIN
     Indication: NEURALGIA
     Route: 048
  14. SINEMET [Concomitant]
     Active Substance: CARBIDOPA\LEVODOPA
     Indication: PARKINSON^S DISEASE
     Route: 048

REACTIONS (4)
  - Skin ulcer [Unknown]
  - Injection site erythema [Unknown]
  - Drug interaction [Unknown]
  - Skin ulcer [Recovered/Resolved]

NARRATIVE: CASE EVENT DATE: 20160215
